FAERS Safety Report 16125347 (Version 1)
Quarter: 2019Q1

REPORT INFORMATION
  Report Type: Spontaneous
  Country: FR (occurrence: FR)
  Receive Date: 20190327
  Receipt Date: 20190327
  Transmission Date: 20190418
  Serious: Yes (Other)
  Sender: FDA-Public Use
  Company Number: PHHY2019FR065369

PATIENT
  Age: 75 Year
  Sex: Male
  Weight: 82 kg

DRUGS (1)
  1. EXELON PATCH [Suspect]
     Active Substance: RIVASTIGMINE
     Indication: AMNESIA
     Dosage: 4.6 MG, Q24H (4.6 MG/24H)
     Route: 062
     Dates: start: 20181205, end: 20190108

REACTIONS (6)
  - Nightmare [Recovered/Resolved]
  - Gait disturbance [Recovered/Resolved]
  - Confusional state [Recovered/Resolved]
  - Neuromuscular blockade [Recovered/Resolved]
  - Rash [Recovered/Resolved]
  - Tremor [Recovered/Resolved]

NARRATIVE: CASE EVENT DATE: 20190106
